FAERS Safety Report 11706996 (Version 1)
Quarter: 2015Q4

REPORT INFORMATION
  Report Type: Spontaneous
  Country: US (occurrence: US)
  Receive Date: 20151104
  Receipt Date: 20151104
  Transmission Date: 20160304
  Serious: No
  Sender: FDA-Public Use
  Company Number: US-ELI_LILLY_AND_COMPANY-US201102003655

PATIENT
  Sex: Female

DRUGS (1)
  1. FORTEO [Suspect]
     Active Substance: TERIPARATIDE
     Indication: OSTEOPOROSIS
     Dosage: 20 UG, DAILY (1/D)
     Dates: start: 20110119

REACTIONS (9)
  - Tension [Recovered/Resolved]
  - Arthralgia [Unknown]
  - Muscular weakness [Unknown]
  - Middle insomnia [Recovering/Resolving]
  - Crying [Recovered/Resolved]
  - Injection site pain [Unknown]
  - Back disorder [Unknown]
  - Anxiety [Recovered/Resolved]
  - Insomnia [Recovered/Resolved]
